FAERS Safety Report 5597711-1 (Version None)
Quarter: 2008Q1

REPORT INFORMATION
  Report Type: 
  Country: None (occurrence: None)
  Receive Date: 20080121
  Receipt Date: 20080107
  Transmission Date: 20080703
  Serious: Yes (Other)
  Sender: FDA-Public Use
  Company Number: ZA-GILEAD-2007-0014314

PATIENT
  Sex: Female
  Weight: 74.5 kg

DRUGS (5)
  1. TRUVADA [Suspect]
     Indication: HIV INFECTION
     Route: 048
     Dates: start: 20070207, end: 20071025
  2. NEVIRAPINE [Suspect]
     Indication: HIV INFECTION
     Route: 048
     Dates: start: 20070207, end: 20071025
  3. BACTRIM [Concomitant]
  4. HYDROCHLOROTHIAZIDE [Concomitant]
  5. GRISEOFULVIN [Concomitant]

REACTIONS (1)
  - HEPATITIS B [None]
